FAERS Safety Report 8916158 (Version 5)
Quarter: 2013Q3

REPORT INFORMATION
  Report Type: Report from Study
  Country: US (occurrence: US)
  Receive Date: 20121120
  Receipt Date: 20130729
  Transmission Date: 20140515
  Serious: Yes (Hospitalization)
  Sender: FDA-Public Use
  Company Number: US-ELI_LILLY_AND_COMPANY-US201208005362

PATIENT
  Age: 84 Year
  Sex: Female

DRUGS (10)
  1. TERIPARATIDE [Suspect]
     Indication: OSTEOPOROSIS
     Dosage: 20 UG, QD
     Dates: start: 20120729
  2. TERIPARATIDE [Suspect]
     Dosage: 20 UG, QD
  3. TERIPARATIDE [Suspect]
     Dosage: 20 UG, QD
  4. TERIPARATIDE [Suspect]
     Dosage: 20 UG, QD
  5. TERIPARATIDE [Suspect]
     Dosage: 20 UG, QD
  6. TERIPARATIDE [Suspect]
     Dosage: 20 UG, QD
  7. TERIPARATIDE [Suspect]
     Dosage: 20 UG, QD
  8. TERIPARATIDE [Suspect]
     Dosage: 20 UG, QD
     Dates: start: 201206
  9. TERIPARATIDE [Suspect]
     Dosage: 20 UG, QD
  10. GLUCOSAMINE + CHONDROITIN [Concomitant]
     Dosage: UNK

REACTIONS (10)
  - Pelvic fracture [Unknown]
  - Injection site bruising [Not Recovered/Not Resolved]
  - Expired drug administered [Unknown]
  - Medication error [Unknown]
  - Incorrect dose administered [Not Recovered/Not Resolved]
  - Hypoacusis [Unknown]
  - Incorrect dose administered [Unknown]
  - Medication error [Unknown]
  - Injection site discomfort [Unknown]
  - Drug dose omission [Recovered/Resolved]
